FAERS Safety Report 6156697-1 (Version None)
Quarter: 2009Q2

REPORT INFORMATION
  Report Type: 
  Country: None (occurrence: None)
  Receive Date: 20090416
  Receipt Date: 20090406
  Transmission Date: 20091009
  Serious: Yes (Death)
  Sender: FDA-Public Use
  Company Number: RS-BAYER-200910291GPV

PATIENT
  Age: 69 Year
  Sex: Male
  Weight: 80 kg

DRUGS (7)
  1. FLUDARA [Suspect]
     Indication: CHRONIC LYMPHOCYTIC LEUKAEMIA
     Dosage: DAY ONE OF FIRST CYCLE
     Route: 042
     Dates: start: 20061018
  2. CYCLOPHOSPHAMIDE [Suspect]
     Indication: CHRONIC LYMPHOCYTIC LEUKAEMIA
     Route: 042
     Dates: start: 20061018
  3. FUROSEMID [Concomitant]
     Indication: CHRONIC LEFT VENTRICULAR FAILURE
     Route: 048
     Dates: start: 20060828
  4. DIGOXIN [Concomitant]
     Indication: CHRONIC LEFT VENTRICULAR FAILURE
     Route: 048
     Dates: start: 20060828
  5. KARVEDILOL [Concomitant]
     Indication: CHRONIC LEFT VENTRICULAR FAILURE
     Route: 048
     Dates: start: 20061016
  6. LIZINOPRIL [Concomitant]
     Indication: CHRONIC LEFT VENTRICULAR FAILURE
     Route: 048
     Dates: start: 20061016
  7. SPIRONOLACTONE [Concomitant]
     Indication: CHRONIC LEFT VENTRICULAR FAILURE
     Route: 048
     Dates: start: 20061016

REACTIONS (2)
  - CARDIOGENIC SHOCK [None]
  - LEFT VENTRICULAR FAILURE [None]
